FAERS Safety Report 6031211-X (Version None)
Quarter: 2008Q4

REPORT INFORMATION
  Report Type: 
  Country: None (occurrence: None)
  Receive Date: 20081224
  Receipt Date: 20081112
  Transmission Date: 20090506
  Serious: No
  Sender: FDA-Public Use
  Company Number: 2008PV037107

PATIENT
  Age: 66 Year
  Sex: Female

DRUGS (4)
  1. SYMLIN [Suspect]
     Indication: TYPE 1 DIABETES MELLITUS
     Dosage: 45 MCG;TID;SC ; 30 MCG;TID;SC ; 15 MCG;TID;SC
     Route: 058
     Dates: start: 20080101, end: 20080101
  2. SYMLIN [Suspect]
     Indication: TYPE 1 DIABETES MELLITUS
     Dosage: 45 MCG;TID;SC ; 30 MCG;TID;SC ; 15 MCG;TID;SC
     Route: 058
     Dates: start: 20081105, end: 20080101
  3. SYMLIN [Suspect]
     Indication: TYPE 1 DIABETES MELLITUS
     Dosage: 45 MCG;TID;SC ; 30 MCG;TID;SC ; 15 MCG;TID;SC
     Route: 058
     Dates: start: 20080101
  4. HUMALOG [Concomitant]

REACTIONS (4)
  - ABDOMINAL DISTENSION [None]
  - ARTHRALGIA [None]
  - BLOOD GLUCOSE INCREASED [None]
  - NAUSEA [None]
